FAERS Safety Report 11593378 (Version 1)
Quarter: 2015Q4

REPORT INFORMATION
  Report Type: Spontaneous
  Country: BR (occurrence: BR)
  Receive Date: 20151005
  Receipt Date: 20151005
  Transmission Date: 20160304
  Serious: Yes (Death, Other)
  Sender: FDA-Public Use
  Company Number: CHPA2015BR011633

PATIENT
  Sex: Male
  Weight: 82 kg

DRUGS (1)
  1. OTRIVIN [Suspect]
     Active Substance: XYLOMETAZOLINE
     Indication: NASAL CONGESTION
     Dosage: UNK
     Route: 045
     Dates: start: 2000

REACTIONS (2)
  - Hernia perforation [Fatal]
  - Drug dependence [Unknown]
